FAERS Safety Report 5466737-0 (Version None)
Quarter: 2007Q3

REPORT INFORMATION
  Report Type: 
  Country: None (occurrence: None)
  Receive Date: 20070924
  Receipt Date: 20070924
  Transmission Date: 20080115
  Serious: Yes (Other)
  Sender: FDA-Public Use
  Company Number: None

PATIENT
  Age: 17 Month
  Sex: Female
  Weight: 9.9791 kg

DRUGS (1)
  1. HUMPHREY'S TEETHING PELLETS 3X [Suspect]
     Indication: TEETHING
     Dosage: 3 PELLETS TO 1/2 TEASPOON WATE EVERY 4 HOURS DENTAL
     Route: 004
     Dates: start: 20070910, end: 20070918

REACTIONS (5)
  - ABNORMAL BEHAVIOUR [None]
  - ANGER [None]
  - EATING DISORDER [None]
  - LETHARGY [None]
  - SCREAMING [None]
